FAERS Safety Report 17875469 (Version 5)
Quarter: 2021Q4

REPORT INFORMATION
  Report Type: Report from Study
  Country: KR (occurrence: None)
  Receive Date: 20200609
  Receipt Date: 20211215
  Transmission Date: 20220303
  Serious: Yes (Hospitalization)
  Sender: FDA-Public Use
  Company Number: 2020SE71162

PATIENT
  Age: 651 Month
  Sex: Female

DRUGS (70)
  1. DURVALUMAB [Suspect]
     Active Substance: DURVALUMAB
     Indication: Cervix carcinoma
     Route: 042
     Dates: start: 20200410, end: 20200410
  2. DURVALUMAB [Suspect]
     Active Substance: DURVALUMAB
     Indication: Cervix carcinoma
     Route: 042
     Dates: start: 20200616, end: 20200616
  3. DURVALUMAB [Suspect]
     Active Substance: DURVALUMAB
     Indication: Cervix carcinoma
     Route: 042
     Dates: start: 20200714, end: 20200714
  4. DURVALUMAB [Suspect]
     Active Substance: DURVALUMAB
     Indication: Cervix carcinoma
     Route: 042
     Dates: start: 20200811, end: 20200811
  5. DURVALUMAB [Suspect]
     Active Substance: DURVALUMAB
     Indication: Cervix carcinoma
     Route: 042
     Dates: start: 20200908, end: 20200908
  6. DURVALUMAB [Suspect]
     Active Substance: DURVALUMAB
     Indication: Cervix carcinoma
     Route: 042
     Dates: start: 20201006, end: 20201006
  7. DURVALUMAB [Suspect]
     Active Substance: DURVALUMAB
     Indication: Cervix carcinoma
     Route: 042
     Dates: start: 20201103, end: 20201103
  8. DURVALUMAB [Suspect]
     Active Substance: DURVALUMAB
     Indication: Cervix carcinoma
     Route: 042
     Dates: start: 20201210, end: 20201210
  9. DURVALUMAB [Suspect]
     Active Substance: DURVALUMAB
     Indication: Cervix carcinoma
     Route: 042
     Dates: start: 20210107, end: 20210107
  10. DURVALUMAB [Suspect]
     Active Substance: DURVALUMAB
     Indication: Cervix carcinoma
     Route: 042
     Dates: start: 20210204, end: 20210204
  11. DURVALUMAB [Suspect]
     Active Substance: DURVALUMAB
     Indication: Cervix carcinoma
     Route: 042
     Dates: start: 20210318, end: 20210318
  12. DURVALUMAB [Suspect]
     Active Substance: DURVALUMAB
     Indication: Cervix carcinoma
     Route: 042
     Dates: start: 20210415, end: 20210415
  13. DURVALUMAB [Suspect]
     Active Substance: DURVALUMAB
     Indication: Cervix carcinoma
     Route: 042
     Dates: start: 20210513, end: 20210513
  14. DURVALUMAB [Suspect]
     Active Substance: DURVALUMAB
     Indication: Cervix carcinoma
     Route: 042
     Dates: start: 20210610, end: 20210610
  15. DURVALUMAB [Suspect]
     Active Substance: DURVALUMAB
     Indication: Cervix carcinoma
     Route: 042
     Dates: start: 20200708, end: 20200708
  16. DURVALUMAB [Suspect]
     Active Substance: DURVALUMAB
     Indication: Cervix carcinoma
     Route: 042
     Dates: start: 20200805, end: 20200805
  17. DURVALUMAB [Suspect]
     Active Substance: DURVALUMAB
     Indication: Cervix carcinoma
     Route: 042
     Dates: start: 20200903, end: 20200903
  18. DURVALUMAB [Suspect]
     Active Substance: DURVALUMAB
     Indication: Cervix carcinoma
     Route: 042
     Dates: start: 20200930, end: 20200930
  19. DURVALUMAB [Suspect]
     Active Substance: DURVALUMAB
     Indication: Cervix carcinoma
     Route: 042
     Dates: start: 20211028, end: 20211028
  20. DURVALUMAB [Suspect]
     Active Substance: DURVALUMAB
     Indication: Cervix carcinoma
     Route: 042
     Dates: start: 20211123, end: 20211123
  21. CISPLATIN [Suspect]
     Active Substance: CISPLATIN
     Indication: Cervix carcinoma
     Dosage: 40 MG/M2 ONCE A WEEK
     Route: 042
     Dates: start: 20200410, end: 20200410
  22. CISPLATIN [Suspect]
     Active Substance: CISPLATIN
     Indication: Cervix carcinoma
     Dosage: 40 MG/M2 ONCE A WEEK
     Route: 042
     Dates: start: 20200417, end: 20200417
  23. CISPLATIN [Suspect]
     Active Substance: CISPLATIN
     Indication: Cervix carcinoma
     Dosage: 40 MG/M2 ONCE A WEEK
     Route: 042
     Dates: start: 20200424, end: 20200424
  24. CISPLATIN [Suspect]
     Active Substance: CISPLATIN
     Indication: Cervix carcinoma
     Dosage: 40 MG/M2 ONCE A WEEK
     Route: 042
     Dates: start: 20200504, end: 20200504
  25. CISPLATIN [Suspect]
     Active Substance: CISPLATIN
     Indication: Cervix carcinoma
     Dosage: 40 MG/M2 ONCE A WEEK
     Route: 042
     Dates: start: 20200512, end: 20200512
  26. NOVASC [Concomitant]
     Indication: Hypertension
     Route: 048
     Dates: start: 20200322
  27. PENIRAMIN [Concomitant]
     Indication: Prophylactic chemotherapy
     Dosage: 4.0MG ONCE/SINGLE ADMINISTRATION
     Route: 042
     Dates: start: 20200504, end: 20200504
  28. PENIRAMIN [Concomitant]
     Indication: Prophylactic chemotherapy
     Dosage: 4.0MG ONCE/SINGLE ADMINISTRATION
     Route: 042
     Dates: start: 20200512, end: 20200512
  29. DEXAMETHASONE [Concomitant]
     Active Substance: DEXAMETHASONE
     Indication: Prophylactic chemotherapy
     Dosage: 20.0MG ONCE/SINGLE ADMINISTRATION
     Route: 042
     Dates: start: 20200504, end: 20200504
  30. DEXAMETHASONE [Concomitant]
     Active Substance: DEXAMETHASONE
     Indication: Prophylactic chemotherapy
     Dosage: 8.0MG ONCE/SINGLE ADMINISTRATION
     Route: 048
     Dates: start: 20200505, end: 20200507
  31. DEXAMETHASONE [Concomitant]
     Active Substance: DEXAMETHASONE
     Indication: Prophylactic chemotherapy
     Dosage: 20.0MG ONCE/SINGLE ADMINISTRATION
     Route: 042
     Dates: start: 20200512, end: 20200512
  32. DEXAMETHASONE [Concomitant]
     Active Substance: DEXAMETHASONE
     Indication: Prophylactic chemotherapy
     Dosage: 8.0MG ONCE/SINGLE ADMINISTRATION
     Route: 048
     Dates: start: 20200513, end: 20200515
  33. GASTER(FAMOTIDINE) [Concomitant]
     Indication: Prophylactic chemotherapy
     Route: 048
     Dates: start: 20200417, end: 20200623
  34. GASTER(FAMOTIDINE) [Concomitant]
     Indication: Dyspepsia
     Route: 048
     Dates: start: 20200417, end: 20200623
  35. GASTER(FAMOTIDINE) [Concomitant]
     Indication: Prophylactic chemotherapy
     Dosage: 20.0MG ONCE/SINGLE ADMINISTRATION
     Route: 042
     Dates: start: 20200504, end: 20200504
  36. GASTER(FAMOTIDINE) [Concomitant]
     Indication: Dyspepsia
     Dosage: 20.0MG ONCE/SINGLE ADMINISTRATION
     Route: 042
     Dates: start: 20200504, end: 20200504
  37. GASTER(FAMOTIDINE) [Concomitant]
     Indication: Prophylactic chemotherapy
     Dosage: 20.0MG ONCE/SINGLE ADMINISTRATION
     Route: 042
     Dates: start: 20200512, end: 20200512
  38. GASTER(FAMOTIDINE) [Concomitant]
     Indication: Dyspepsia
     Dosage: 20.0MG ONCE/SINGLE ADMINISTRATION
     Route: 042
     Dates: start: 20200512, end: 20200512
  39. EMEND [Concomitant]
     Active Substance: APREPITANT
     Indication: Prophylactic chemotherapy
     Dosage: 125.0MG ONCE/SINGLE ADMINISTRATION
     Route: 048
     Dates: start: 20200504, end: 20200504
  40. EMEND [Concomitant]
     Active Substance: APREPITANT
     Indication: Prophylactic chemotherapy
     Dosage: 80.0MG ONCE/SINGLE ADMINISTRATION
     Route: 048
     Dates: start: 20200505, end: 20200506
  41. EMEND [Concomitant]
     Active Substance: APREPITANT
     Indication: Prophylactic chemotherapy
     Dosage: 125.0MG ONCE/SINGLE ADMINISTRATION
     Route: 048
     Dates: start: 20200512, end: 20200512
  42. EMEND [Concomitant]
     Active Substance: APREPITANT
     Indication: Prophylactic chemotherapy
     Dosage: 80.0MG ONCE/SINGLE ADMINISTRATION
     Route: 048
     Dates: start: 20200513, end: 20200514
  43. NORZYME [Concomitant]
     Indication: Dyspepsia
     Route: 048
     Dates: start: 20200417, end: 20200518
  44. KYTRIL [Concomitant]
     Active Substance: GRANISETRON HYDROCHLORIDE
     Indication: Nausea
     Route: 048
     Dates: start: 20200428, end: 20200503
  45. KYTRIL [Concomitant]
     Active Substance: GRANISETRON HYDROCHLORIDE
     Indication: Nausea
     Route: 048
     Dates: start: 20200507, end: 20200511
  46. KYTRIL [Concomitant]
     Active Substance: GRANISETRON HYDROCHLORIDE
     Indication: Nausea
     Route: 048
     Dates: start: 20200515, end: 20200519
  47. TYLENOL-ER [Concomitant]
     Indication: Pain prophylaxis
     Route: 048
     Dates: start: 20200417, end: 20200518
  48. ALOXI [Concomitant]
     Active Substance: PALONOSETRON HYDROCHLORIDE
     Indication: Prophylactic chemotherapy
     Dosage: 1.5ML ONCE/SINGLE ADMINISTRATION
     Route: 042
     Dates: start: 20200512, end: 20200512
  49. HORMONILAN SOL [Concomitant]
     Indication: Decreased appetite
     Route: 048
     Dates: start: 20200511, end: 20200602
  50. ENCOVER SOL [Concomitant]
     Indication: Decreased appetite
     Route: 048
     Dates: start: 20200511, end: 20200524
  51. MVI INJ [Concomitant]
     Indication: Vitamin supplementation
     Dosage: 5.0ML ONCE/SINGLE ADMINISTRATION
     Route: 042
     Dates: start: 20200519, end: 20200519
  52. LEUCOSTIM INJ [Concomitant]
     Indication: White blood cell count decreased
     Dosage: 75.0UG/INHAL ONCE/SINGLE ADMINISTRATION
     Route: 058
     Dates: start: 20200519, end: 20200519
  53. LEUCOSTIM INJ [Concomitant]
     Indication: Febrile neutropenia
     Dosage: 75.0UG/INHAL ONCE/SINGLE ADMINISTRATION
     Route: 058
     Dates: start: 20200519, end: 20200519
  54. SANCUSO [Concomitant]
     Active Substance: GRANISETRON
     Indication: Nausea
     Dosage: 1.0 OTHER ONCE/SINGLE ADMINISTRATION
     Route: 062
     Dates: start: 20200519, end: 20200521
  55. GODEX(CARNITINE OROTATE 150MG, LIVER EXTRACT ANTITOXIC FRACTION 12.... [Concomitant]
     Indication: Gamma-glutamyltransferase increased
     Route: 048
     Dates: start: 20200519, end: 20200601
  56. GODEX(CARNITINE OROTATE 150MG, LIVER EXTRACT ANTITOXIC FRACTION 12.... [Concomitant]
     Indication: Alanine aminotransferase increased
     Route: 048
     Dates: start: 20200519, end: 20200601
  57. URSODIOL [Concomitant]
     Active Substance: URSODIOL
     Indication: Gamma-glutamyltransferase increased
     Route: 048
     Dates: start: 20200519, end: 20200601
  58. URSODIOL [Concomitant]
     Active Substance: URSODIOL
     Indication: Alanine aminotransferase increased
     Route: 048
     Dates: start: 20200519, end: 20200601
  59. FILGRASTIM [Concomitant]
     Active Substance: FILGRASTIM
     Indication: Febrile neutropenia
     Dosage: 75.0UG/INHAL ONCE/SINGLE ADMINISTRATION
     Route: 058
     Dates: start: 20200528, end: 20200528
  60. PHENIRAMINE [Concomitant]
     Active Substance: PHENIRAMINE
     Indication: Transfusion
     Dosage: 4.0MG ONCE/SINGLE ADMINISTRATION
     Route: 042
     Dates: start: 20200528, end: 20200528
  61. PROPACETAMOL HYDROCHLORIDE [Concomitant]
     Active Substance: PROPACETAMOL HYDROCHLORIDE
     Indication: Pyrexia
     Dosage: 1000.0MG ONCE/SINGLE ADMINISTRATION
     Route: 042
     Dates: start: 20200528, end: 20200528
  62. PROPACETAMOL HYDROCHLORIDE [Concomitant]
     Active Substance: PROPACETAMOL HYDROCHLORIDE
     Indication: Febrile neutropenia
     Dosage: 1000.0MG ONCE/SINGLE ADMINISTRATION
     Route: 042
     Dates: start: 20200528, end: 20200528
  63. WINUF PERI INJ [Concomitant]
     Indication: Decreased appetite
     Dosage: 1085.0 ML OTHER
     Route: 042
     Dates: start: 20200529, end: 20200530
  64. FURTMAN INJ [Concomitant]
     Indication: Decreased appetite
     Dosage: 0.4 ML OTHER
     Route: 042
     Dates: start: 20200529, end: 20200530
  65. TAMIPOOL INJ [Concomitant]
     Indication: Decreased appetite
     Dosage: 5.0 ML OTHER
     Route: 042
     Dates: start: 20200529, end: 20200530
  66. FERINJECT [Concomitant]
     Active Substance: FERRIC CARBOXYMALTOSE
     Indication: Anaemia
     Dosage: 500.0MG ONCE/SINGLE ADMINISTRATION
     Route: 042
     Dates: start: 20200529, end: 20200529
  67. CACL2 3% [Concomitant]
     Indication: Calcium deficiency
     Dosage: 600.0MG ONCE/SINGLE ADMINISTRATION
     Route: 042
     Dates: start: 20200529, end: 20200529
  68. ALBUMIN HUMAN [Concomitant]
     Active Substance: ALBUMIN HUMAN
     Indication: Prophylaxis
     Dosage: 100.0ML ONCE/SINGLE ADMINISTRATION
     Route: 042
     Dates: start: 20200529, end: 20200529
  69. POTASSIUM CHLORIDE [Concomitant]
     Active Substance: POTASSIUM CHLORIDE
     Indication: Hypokalaemia
     Route: 048
     Dates: start: 20200529, end: 20200606
  70. WHOLE BLOOD [Concomitant]
     Active Substance: WHOLE BLOOD
     Indication: Anaemia
     Dosage: 1.0 OTHER ONCE/SINGLE ADMINISTRATION
     Route: 042
     Dates: start: 20200528, end: 20200528

REACTIONS (1)
  - Febrile neutropenia [Recovered/Resolved]

NARRATIVE: CASE EVENT DATE: 20200529
